FAERS Safety Report 5044790-6 (Version None)
Quarter: 2006Q3

REPORT INFORMATION
  Report Type: 
  Country: None (occurrence: None)
  Receive Date: 20060707
  Receipt Date: 20060606
  Transmission Date: 20061208
  Serious: Yes (Other)
  Sender: FDA-Public Use
  Company Number: US-AMGEN-STX182198

PATIENT
  Sex: Male

DRUGS (4)
  1. ENBREL [Suspect]
     Indication: ANKYLOSING SPONDYLITIS
     Route: 058
     Dates: start: 20041004, end: 20060223
  2. METHOTREXATE [Concomitant]
     Dates: start: 20040701, end: 20060201
  3. MOTRIN [Concomitant]
  4. FOLATE SODIUM [Concomitant]
     Dates: start: 20040701

REACTIONS (1)
  - SARCOIDOSIS [None]
